FAERS Safety Report 12840352 (Version 23)
Quarter: 2020Q1

REPORT INFORMATION
  Report Type: Report from Study
  Country: CO (occurrence: CO)
  Receive Date: 20161012
  Receipt Date: 20200127
  Transmission Date: 20200409
  Serious: Yes (Hospitalization, Other)
  Sender: FDA-Public Use
  Company Number: CO-SA-2016SA183208

PATIENT
  Age: 61 Year
  Sex: Female

DRUGS (2)
  1. LEVOTHYROXINE. [Concomitant]
     Active Substance: LEVOTHYROXINE
     Dosage: UNK UNK, UNK
     Route: 065
  2. ALEMTUZUMAB [Suspect]
     Active Substance: ALEMTUZUMAB
     Indication: MULTIPLE SCLEROSIS
     Dosage: 12 MG,QD
     Route: 041
     Dates: start: 20160116, end: 20160118

REACTIONS (31)
  - Pneumonia [Recovered/Resolved]
  - Hypoxia [Unknown]
  - Eosinophil count increased [Recovered/Resolved]
  - Vomiting [Recovered/Resolved]
  - Crystalluria [Recovered/Resolved]
  - Gastrointestinal infection [Recovered/Resolved]
  - Pruritus [Unknown]
  - Lymphocyte count decreased [Not Recovered/Not Resolved]
  - Hypothermia [Recovered/Resolved]
  - Post herpetic neuralgia [Recovered/Resolved]
  - Differential white blood cell count abnormal [Unknown]
  - Condition aggravated [Recovered/Resolved]
  - Mucosal dryness [Recovered/Resolved]
  - Eosinophilia [Recovered/Resolved]
  - Blood creatinine increased [Recovered/Resolved]
  - Sjogren^s syndrome [Recovered/Resolved]
  - Eating disorder [Recovered/Resolved]
  - Bronchial disorder [Unknown]
  - Lymphopenia [Recovered/Resolved]
  - Crystal urine present [Recovered/Resolved]
  - Radiculopathy [Recovered/Resolved]
  - Pain [Recovered/Resolved]
  - Arthralgia [Recovered/Resolved]
  - White blood cell count decreased [Recovered/Resolved]
  - Pain [Recovered/Resolved]
  - Leukopenia [Recovered/Resolved]
  - Herpes zoster disseminated [Recovered/Resolved]
  - Stomatitis [Recovered/Resolved]
  - Pyrexia [Recovered/Resolved]
  - Bacterial test positive [Recovered/Resolved]
  - Blood thyroid stimulating hormone decreased [Recovered/Resolved]

NARRATIVE: CASE EVENT DATE: 2016
